FAERS Safety Report 23597419 (Version 1)
Quarter: 2024Q1

REPORT INFORMATION
  Report Type: Spontaneous
  Country: US (occurrence: None)
  Receive Date: 20240305
  Receipt Date: 20240305
  Transmission Date: 20240410
  Serious: No
  Sender: FDA-Public Use
  Company Number: None

PATIENT
  Age: 21 Year
  Sex: Male

DRUGS (1)
  1. TALTZ [Suspect]
     Active Substance: IXEKIZUMAB
     Indication: Psoriasis
     Dosage: INJECT 80MG SUBCUTANEOUSLY EVERY 2 WEEKS AT WEEKS 4-12 AS DIRECTED.    ?
     Route: 058
     Dates: start: 202311

REACTIONS (1)
  - Influenza [None]
